FAERS Safety Report 5269564-2 (Version None)
Quarter: 2007Q1

REPORT INFORMATION
  Report Type: 
  Country: None (occurrence: None)
  Receive Date: 20061213
  Receipt Date: 20050411
  Transmission Date: 20070707
  Serious: No
  Sender: FDA-Public Use
  Company Number: 2005UW06307

PATIENT
  Age: 47 Year
  Sex: Female
  Weight: 86.182 kg

DRUGS (4)
  1. TAMOXIFEN CITRATE [Suspect]
     Indication: BREAST CANCER
     Dates: start: 20040101, end: 20040101
  2. FOSAMAX [Concomitant]
  3. CALCIUM [Concomitant]
  4. MOTRIN [Concomitant]

REACTIONS (1)
  - THROMBOSIS [None]
